FAERS Safety Report 11502296 (Version 2)
Quarter: 2016Q3

REPORT INFORMATION
  Report Type: Spontaneous
  Country: US (occurrence: US)
  Receive Date: 20150914
  Receipt Date: 20160915
  Transmission Date: 20161109
  Serious: No
  Sender: FDA-Public Use
  Company Number: US-ASTELLAS-2015US020074

PATIENT
  Age: 63 Year
  Sex: Male

DRUGS (4)
  1. CASODEX [Concomitant]
     Active Substance: BICALUTAMIDE
     Indication: PRODUCT USED FOR UNKNOWN INDICATION
     Dosage: UNK UNK, UNKNOWN FREQ.
     Route: 065
  2. LUPRON [Concomitant]
     Active Substance: LEUPROLIDE ACETATE
     Indication: PRODUCT USED FOR UNKNOWN INDICATION
     Dosage: UNK UNK, UNKNOWN FREQ.
     Route: 065
  3. ZOMETA [Concomitant]
     Active Substance: ZOLEDRONIC ACID
     Indication: PRODUCT USED FOR UNKNOWN INDICATION
     Dosage: UNK UNK, UNKNOWN FREQ.
     Route: 065
  4. XTANDI [Suspect]
     Active Substance: ENZALUTAMIDE
     Indication: HORMONE-REFRACTORY PROSTATE CANCER
     Dosage: 160 MG (FOUR CAPSULES OF 40MG), ONCE DAILY
     Route: 048
     Dates: start: 201412

REACTIONS (12)
  - Fatigue [Recovered/Resolved]
  - Polyneuropathy [Recovering/Resolving]
  - Oedema peripheral [Recovering/Resolving]
  - Eye injury [Unknown]
  - Fluid retention [Recovering/Resolving]
  - Fat tissue increased [Unknown]
  - Rash [Recovering/Resolving]
  - Joint swelling [Recovering/Resolving]
  - Fatigue [Unknown]
  - Peripheral swelling [Recovering/Resolving]
  - Somnolence [Unknown]
  - Dermatitis contact [Recovering/Resolving]

NARRATIVE: CASE EVENT DATE: 201412
